FAERS Safety Report 24342918 (Version 1)
Quarter: 2024Q3

REPORT INFORMATION
  Report Type: Spontaneous
  Country: CN (occurrence: CN)
  Receive Date: 20240920
  Receipt Date: 20240920
  Transmission Date: 20241016
  Serious: Yes (Hospitalization)
  Sender: NOVAST
  Company Number: CN-NOVAST LABORATORIES INC.-2024NOV000300

PATIENT

DRUGS (1)
  1. METOPROLOL SUCCINATE [Suspect]
     Active Substance: METOPROLOL SUCCINATE
     Indication: Cardiac failure
     Dosage: 50 MILLIGRAM
     Route: 048
     Dates: start: 20240827, end: 20240901

REACTIONS (1)
  - Shock [Recovering/Resolving]
